FAERS Safety Report 24873542 (Version 1)
Quarter: 2025Q1

REPORT INFORMATION
  Report Type: Spontaneous
  Country: GB (occurrence: GB)
  Receive Date: 20250122
  Receipt Date: 20250122
  Transmission Date: 20250409
  Serious: Yes (Other)
  Sender: SANOFI AVENTIS
  Company Number: GB-SA-2025SA018435

PATIENT
  Sex: Male

DRUGS (1)
  1. SARCLISA [Suspect]
     Active Substance: ISATUXIMAB-IRFC
     Indication: Plasma cell myeloma refractory
     Route: 042

REACTIONS (3)
  - Lower respiratory tract infection [Recovering/Resolving]
  - Nausea [Recovering/Resolving]
  - Fatigue [Recovering/Resolving]
